FAERS Safety Report 22869906 (Version 2)
Quarter: 2023Q4

REPORT INFORMATION
  Report Type: Spontaneous
  Country: US (occurrence: US)
  Receive Date: 20230828
  Receipt Date: 20231017
  Transmission Date: 20240110
  Serious: Yes (Other)
  Sender: FDA-Public Use
  Company Number: US-BRISTOL-MYERS SQUIBB COMPANY-2023-117934

PATIENT
  Sex: Female

DRUGS (26)
  1. SPRYCEL [Interacting]
     Active Substance: DASATINIB
     Indication: Philadelphia positive acute lymphocytic leukaemia
     Dosage: DOSE : 70MG;     FREQ : UNAVAILABLE
     Route: 048
     Dates: start: 20230619, end: 20230626
  2. SPRYCEL [Interacting]
     Active Substance: DASATINIB
     Dosage: DOSE : 70MG;     FREQ : UNAVAILABLE
     Route: 048
     Dates: start: 20230705, end: 20230817
  3. SPRYCEL [Interacting]
     Active Substance: DASATINIB
     Dosage: DOSE : 70MG;     FREQ : UNAVAILABLE
     Route: 048
     Dates: start: 20230818
  4. VORICONAZOLE [Interacting]
     Active Substance: VORICONAZOLE
     Indication: Systemic candida
     Dosage: ADMINISTRATION VIA NG
     Route: 050
     Dates: start: 20230815
  5. DEXAMETHASONE [Concomitant]
     Active Substance: DEXAMETHASONE
     Indication: Philadelphia positive acute lymphocytic leukaemia
     Dosage: BID, ORAL/NG
     Dates: start: 20230831, end: 20230904
  6. ETOPOSIDE [Concomitant]
     Active Substance: ETOPOSIDE
     Indication: Philadelphia positive acute lymphocytic leukaemia
     Route: 042
     Dates: start: 20230902, end: 20230904
  7. CYTARABINE [Concomitant]
     Active Substance: CYTARABINE
     Indication: Philadelphia positive acute lymphocytic leukaemia
     Route: 042
     Dates: start: 20230831, end: 20230901
  8. PEGFILGRASTIM [Concomitant]
     Active Substance: PEGFILGRASTIM
     Indication: Neutropenia
     Dosage: ONCE
     Route: 058
     Dates: start: 20230905, end: 20230905
  9. CYTARABINE\HYDROCORTISONE\METHOTREXATE [Concomitant]
     Active Substance: CYTARABINE\HYDROCORTISONE\METHOTREXATE
     Indication: Philadelphia positive acute lymphocytic leukaemia
     Dosage: ONCE
     Route: 037
     Dates: start: 20230905, end: 20230905
  10. METHOTREXATE [Concomitant]
     Active Substance: METHOTREXATE
     Indication: Philadelphia positive acute lymphocytic leukaemia
     Route: 042
     Dates: start: 20230808, end: 20230809
  11. METHOTREXATE [Concomitant]
     Active Substance: METHOTREXATE
     Route: 042
     Dates: start: 20230808, end: 20230808
  12. HYDROXYZINE [Concomitant]
     Active Substance: HYDROXYZINE HYDROCHLORIDE
     Indication: Nausea
     Dosage: ORAL/NG
  13. DULOXETINE [Concomitant]
     Active Substance: DULOXETINE
     Indication: Depression
     Route: 048
  14. ENOXAPARIN [Concomitant]
     Active Substance: ENOXAPARIN
     Indication: Thrombosis
     Route: 058
  15. GABAPENTIN [Concomitant]
     Active Substance: GABAPENTIN
     Indication: Neuropathy peripheral
     Dosage: NG
  16. MEGESTROL [Concomitant]
     Active Substance: MEGESTROL
     Indication: Increased appetite
     Dosage: NG
  17. MICAFUNGIN [Concomitant]
     Active Substance: MICAFUNGIN SODIUM
     Indication: Systemic candida
     Route: 042
  18. MORPHINE [Concomitant]
     Active Substance: MORPHINE
     Indication: Pain
     Route: 048
  19. ONDANSETRON [Concomitant]
     Active Substance: ONDANSETRON
     Indication: Nausea
     Route: 042
  20. SODIUM PHOSPHATE [Concomitant]
     Active Substance: SODIUM PHOSPHATE
     Indication: Product used for unknown indication
     Dosage: ORAL/NG
  21. POTASSIUM [Concomitant]
     Active Substance: POTASSIUM
     Indication: Product used for unknown indication
     Dosage: ORAL/NG
  22. SCOPOLAMINE [Concomitant]
     Active Substance: SCOPOLAMINE
     Indication: Nausea
     Route: 062
  23. SENNA LEAF [Concomitant]
     Active Substance: SENNA LEAF
     Indication: Constipation
     Dosage: NG
  24. BACTRIM [Concomitant]
     Active Substance: SULFAMETHOXAZOLE\TRIMETHOPRIM
     Indication: Antifungal prophylaxis
     Dosage: NG
  25. VALACYCLOVIR [Concomitant]
     Active Substance: VALACYCLOVIR HYDROCHLORIDE
     Indication: Herpes simplex
     Dosage: NG
  26. VINCRISTINE [Concomitant]
     Active Substance: VINCRISTINE
     Indication: Philadelphia positive acute lymphocytic leukaemia

REACTIONS (2)
  - Labelled drug-drug interaction medication error [Unknown]
  - Myelosuppression [Unknown]
